FAERS Safety Report 4620071-7 (Version None)
Quarter: 2005Q1

REPORT INFORMATION
  Report Type: 
  Country: None (occurrence: None)
  Receive Date: 20050323
  Receipt Date: 20050323
  Transmission Date: 20050727
  Serious: Yes (Other)
  Sender: FDA-Public Use
  Company Number: None

PATIENT
  Age: 74 Year
  Sex: Female

DRUGS (6)
  1. LEXAPRO [Suspect]
     Indication: DEPRESSION
     Dosage: 5MG  QD   ORAL
     Route: 048
     Dates: start: 20040317, end: 20041031
  2. VITAMIN B-12 [Concomitant]
  3. OSCAL [Concomitant]
  4. MULTIPLE VITAMIN [Concomitant]
  5. SYNTHROID [Concomitant]
  6. SENOKOT [Concomitant]

REACTIONS (1)
  - BRUXISM [None]
